FAERS Safety Report 5730639-2 (Version None)
Quarter: 2008Q2

REPORT INFORMATION
  Report Type: 
  Country: None (occurrence: None)
  Receive Date: 20080507
  Receipt Date: 20080501
  Transmission Date: 20081010
  Serious: Yes (Life-Threatening, Hospitalization)
  Sender: FDA-Public Use
  Company Number: GB-TEVA-148180ISR

PATIENT
  Age: 15 Year
  Sex: Female

DRUGS (4)
  1. PREDNISOLONE [Suspect]
  2. MINOCYCLINE HYDROCHLORIDE [Suspect]
  3. PYRIDOSTIGMINE BROMIDE [Suspect]
     Indication: MYASTHENIA GRAVIS
     Route: 048
     Dates: start: 20050920, end: 20051101
  4. OMEPRAZOLE [Suspect]

REACTIONS (1)
  - TOXIC EPIDERMAL NECROLYSIS [None]
